FAERS Safety Report 9542528 (Version 3)
Quarter: 2013Q4

REPORT INFORMATION
  Report Type: Report from Study
  Country: US (occurrence: US)
  Receive Date: 20130923
  Receipt Date: 20131010
  Transmission Date: 20140711
  Serious: Yes (Hospitalization)
  Sender: FDA-Public Use
  Company Number: US-SANOFI-AVENTIS-2013SA090290

PATIENT
  Age: 56 Year
  Sex: Female
  Weight: 53 kg

DRUGS (17)
  1. AUBAGIO [Suspect]
     Indication: MULTIPLE SCLEROSIS
     Route: 048
     Dates: start: 20130822, end: 20130913
  2. FOLIC ACID [Concomitant]
     Dosage: 2 TABLETS
     Route: 065
  3. LISINOPRIL [Concomitant]
     Indication: BLOOD PRESSURE
     Route: 065
  4. CYMBALTA [Concomitant]
     Indication: MULTIPLE SCLEROSIS
     Dosage: 2 TABLETS
     Route: 065
  5. OXYCODONE [Concomitant]
     Indication: BREAKTHROUGH PAIN
     Route: 065
  6. MECLIZINE [Concomitant]
     Indication: MULTIPLE SCLEROSIS
     Route: 065
  7. MECLIZINE [Concomitant]
     Indication: DIZZINESS
     Route: 065
  8. VITAMIN D3 [Concomitant]
     Dosage: 2 TABLETS
     Route: 065
  9. EVENING PRIMROSE OIL [Concomitant]
     Indication: MULTIPLE SCLEROSIS
     Dosage: 2 TABLETS
     Route: 048
  10. CLONAZEPAM [Concomitant]
     Indication: DYSKINESIA
     Route: 048
  11. CLONAZEPAM [Concomitant]
     Indication: MULTIPLE SCLEROSIS
     Route: 048
  12. METHYLPHENIDATE [Concomitant]
     Indication: FATIGUE
     Route: 065
  13. METHYLPHENIDATE [Concomitant]
     Indication: MULTIPLE SCLEROSIS
     Route: 065
  14. BACLOFEN [Concomitant]
     Indication: MUSCULOSKELETAL DISCOMFORT
     Dosage: 2 TABLETS
     Route: 065
  15. BACLOFEN [Concomitant]
     Indication: MULTIPLE SCLEROSIS
     Dosage: 2 TABLETS
     Route: 065
  16. PRAMIPEXOLE [Concomitant]
     Indication: RESTLESS LEGS SYNDROME
     Dosage: DONT TAKE VERY OFTEN
     Route: 065
  17. OXYMORPHONE [Concomitant]
     Indication: PAIN

REACTIONS (8)
  - Grand mal convulsion [Recovered/Resolved]
  - Lethargy [Recovered/Resolved]
  - Vomiting [Recovered/Resolved]
  - Malaise [Recovered/Resolved]
  - Amnesia [Recovered/Resolved]
  - Abasia [Recovered/Resolved]
  - Bronchitis [Not Recovered/Not Resolved]
  - Cough [Not Recovered/Not Resolved]
